FAERS Safety Report 7632820-4 (Version None)
Quarter: 2011Q3

REPORT INFORMATION
  Report Type: 
  Country: None (occurrence: None)
  Receive Date: 20110725
  Receipt Date: 20110719
  Transmission Date: 20111222
  Serious: Yes (Other)
  Sender: FDA-Public Use
  Company Number: US-SANOFI-AVENTIS-2011SA037524

PATIENT
  Age: 85 Year
  Sex: Male
  Weight: 86.3 kg

DRUGS (8)
  1. COUMADIN [Concomitant]
     Dates: start: 20050101
  2. TERAZOSIN HCL [Concomitant]
     Indication: PROSTATIC DISORDER
     Dates: start: 20050101
  3. MULTAQ [Suspect]
     Indication: ATRIAL FIBRILLATION
     Route: 048
     Dates: start: 20101201, end: 20110608
  4. ACIPHEX [Concomitant]
     Indication: GASTRIC DISORDER
     Dates: start: 20050101
  5. ASPIRIN [Concomitant]
     Dosage: TAKES 2 TABLETS OF 81 MG (NOT SPECIFIED AT ONCE OR BID)
     Dates: start: 20050101
  6. PROSCAR [Concomitant]
     Indication: PROSTATIC DISORDER
     Dates: start: 20050101
  7. MONOPRIL [Concomitant]
     Indication: BLOOD PRESSURE
     Dates: start: 20050101
  8. ZOCOR [Concomitant]
     Dates: start: 20050101

REACTIONS (2)
  - ATRIAL FIBRILLATION [None]
  - CONDITION AGGRAVATED [None]
